FAERS Safety Report 14110874 (Version 2)
Quarter: 2017Q4

REPORT INFORMATION
  Report Type: Spontaneous
  Country: US (occurrence: US)
  Receive Date: 20171020
  Receipt Date: 20171218
  Transmission Date: 20180321
  Serious: No
  Sender: FDA-Public Use
  Company Number: US-PFIZER INC-2017452990

PATIENT
  Age: 64 Year
  Sex: Male
  Weight: 93.88 kg

DRUGS (20)
  1. LACTAID [Concomitant]
     Active Substance: LACTASE
     Dosage: 3000 IU, 3X/DAY (WITH MEALS)
     Route: 048
  2. PRILOSEC [Concomitant]
     Active Substance: OMEPRAZOLE MAGNESIUM
     Dosage: 20 MG, 1X/DAY (EVERY MORNING BEFORE BREAKFAST)/ DO NOT CRUSH OR CHEW
     Route: 048
  3. SYMBICORT [Concomitant]
     Active Substance: BUDESONIDE\FORMOTEROL FUMARATE DIHYDRATE
     Dosage: 2 DF, 2X/DAY ([BUDESONIDE 160 MCG]/[FORMOTEROL 4.5 MCG])/ INHALE 2 PUFFS INTO THE LUNGS
     Route: 055
  4. FLOMAX [Concomitant]
     Active Substance: TAMSULOSIN HYDROCHLORIDE
     Dosage: 0.4 MG, DAILY(30 MINS FOLLOWING SAME MEAL EVERY DAY)
     Route: 048
  5. VENTOLIN HFA [Concomitant]
     Active Substance: ALBUTEROL SULFATE
     Indication: WHEEZING
  6. PROZAC [Concomitant]
     Active Substance: FLUOXETINE HYDROCHLORIDE
     Dosage: 40 MG, DAILY
     Route: 048
  7. MUCINEX [Concomitant]
     Active Substance: GUAIFENESIN
     Dosage: 600 MG, 2X/DAY
     Route: 048
  8. ZOFRAN [Concomitant]
     Active Substance: ONDANSETRON HYDROCHLORIDE
     Indication: NAUSEA
     Dosage: 4 MG, AS NEEDED (EVERY 8 (EIGHT) HOURS)
     Route: 048
  9. VIAGRA [Suspect]
     Active Substance: SILDENAFIL CITRATE
     Indication: ERECTILE DYSFUNCTION
     Dosage: 100 MG, AS NEEDED (ONCE DAILY)
     Route: 048
     Dates: start: 2014
  10. VENTOLIN HFA [Concomitant]
     Active Substance: ALBUTEROL SULFATE
     Indication: DYSPNOEA
     Dosage: 180 UG, AS NEEDED (INHALE 2 PUFFS INTO THE LUNGS EVERY 4 HOURS)
     Route: 055
  11. NORVASC [Concomitant]
     Active Substance: AMLODIPINE BESYLATE
     Dosage: 5 MG, 1X/DAY
     Route: 048
  12. REMERON [Concomitant]
     Active Substance: MIRTAZAPINE
     Dosage: 30 MG, 1X/DAY (NIGHTLY AT BEDTIME)
     Route: 048
  13. TYLENOL [Concomitant]
     Active Substance: ACETAMINOPHEN
     Dosage: 1000 MG, 2X/DAY (2 TABS)
     Route: 048
  14. ABILIFY [Concomitant]
     Active Substance: ARIPIPRAZOLE
     Dosage: 10 MG, 1X/DAY
     Route: 048
  15. FLUZONE [Concomitant]
     Active Substance: INFLUENZA A VIRUS A/CALIFORNIA/7/2009 X-179A (H1N1) ANTIGEN (FORMALDEHYDE INACTIVATED)\INFLUENZA A VIRUS A/VICTORIA/210/2009 X-187 (H3N2) ANTIGEN (FORMALDEHYDE INACTIVATED)\INFLUENZA B VIRUS B/BRISBANE/60/2008 ANTIGEN (FORMALDEHYDE INACTIVATED)
     Dosage: 0.5 ML, UNK (FLU VACC TS2017-18 65YR UP (PF)/UTD)
     Route: 030
  16. PROSCAR [Concomitant]
     Active Substance: FINASTERIDE
     Dosage: 5 MG, DAILY
     Route: 048
  17. DESYREL [Concomitant]
     Active Substance: TRAZODONE HYDROCHLORIDE
     Dosage: 100 MG, 1X/DAY (NIGHTLY AT BEDTIME)
     Route: 048
  18. PROVENTIL [Concomitant]
     Active Substance: ALBUTEROL
     Indication: WHEEZING
     Dosage: 3 ML, AS NEEDED (2.5 MG /3 ML)/ BY NEBULIZATION EVERY 6 (SIX) HOURS
     Route: 055
  19. PROZAC [Concomitant]
     Active Substance: FLUOXETINE HYDROCHLORIDE
     Dosage: 10 MG, 1X/DAY( EVERY MORNING)
     Route: 048
  20. NEURONTIN [Concomitant]
     Active Substance: GABAPENTIN
     Dosage: 600 MG, 3X/DAY
     Route: 048

REACTIONS (1)
  - Intentional product misuse [Unknown]
